FAERS Safety Report 12811585 (Version 1)
Quarter: 2016Q4

REPORT INFORMATION
  Report Type: Other
  Country: US (occurrence: US)
  Receive Date: 20161005
  Receipt Date: 20161005
  Transmission Date: 20170207
  Serious: Yes (Other)
  Sender: FDA-Public Use
  Company Number: US-WARNER CHILCOTT, LLC-1058016

PATIENT
  Sex: Female

DRUGS (4)
  1. ALENDRONATE [Suspect]
     Active Substance: ALENDRONATE SODIUM
     Route: 065
  2. ZOLEDRONIC ACID [Suspect]
     Active Substance: ZOLEDRONIC ACID
     Route: 042
  3. PLACEBO [Suspect]
     Active Substance: UNSPECIFIED INGREDIENT
     Route: 058
  4. RISEDRONATE [Suspect]
     Active Substance: RISEDRONATE SODIUM
     Indication: OSTEOPOROSIS
     Route: 048

REACTIONS (3)
  - Bone pain [Recovered/Resolved]
  - Gait disturbance [Recovered/Resolved]
  - Atypical femur fracture [Recovered/Resolved]
